FAERS Safety Report 17516645 (Version 1)
Quarter: 2020Q1

REPORT INFORMATION
  Report Type: Spontaneous
  Country: US (occurrence: US)
  Receive Date: 20200309
  Receipt Date: 20200309
  Transmission Date: 20200409
  Serious: Yes (Hospitalization, Other)
  Sender: FDA-Public Use
  Company Number: US-CASPER PHARMA LLC-2020CAS000091

PATIENT
  Age: 32 Year
  Sex: Female

DRUGS (1)
  1. PENICILLIN G BENZATHINE [Suspect]
     Active Substance: PENICILLIN G BENZATHINE
     Indication: LATENT SYPHILIS
     Dosage: 2.4 MILLION  UNITS
     Route: 065

REACTIONS (2)
  - Drug hypersensitivity [Unknown]
  - Jarisch-Herxheimer reaction [Unknown]
